FAERS Safety Report 5429146-6 (Version None)
Quarter: 2007Q3

REPORT INFORMATION
  Report Type: 
  Country: None (occurrence: None)
  Receive Date: 20070829
  Receipt Date: 20070824
  Transmission Date: 20080115
  Serious: Yes (Other)
  Sender: FDA-Public Use
  Company Number: US-SP-2007-02892

PATIENT
  Age: 4 Year
  Sex: Male

DRUGS (4)
  1. DAPTACEL [Suspect]
     Indication: IMMUNISATION
     Route: 030
     Dates: start: 20070817
  2. IPOL [Suspect]
     Indication: IMMUNISATION
     Route: 030
     Dates: start: 20070817
  3. TUBERSOL [Suspect]
     Indication: TUBERCULIN TEST
     Route: 065
     Dates: start: 20070817
  4. VARIVAX [Suspect]
     Indication: IMMUNISATION
     Route: 030
     Dates: start: 20070817

REACTIONS (3)
  - CELLULITIS [None]
  - RASH MACULAR [None]
  - RASH PAPULAR [None]
